FAERS Safety Report 7483911-2 (Version None)
Quarter: 2011Q2

REPORT INFORMATION
  Report Type: 
  Country: None (occurrence: None)
  Receive Date: 20110517
  Receipt Date: 20110509
  Transmission Date: 20111010
  Serious: Yes (Other)
  Sender: FDA-Public Use
  Company Number: US-SANOFI-AVENTIS-2011SA029684

PATIENT
  Age: 5 Year
  Sex: Female

DRUGS (1)
  1. ALLEGRA [Suspect]
     Route: 048
     Dates: start: 20110412, end: 20110417

REACTIONS (4)
  - EMOTIONAL DISORDER [None]
  - SUICIDAL IDEATION [None]
  - DEPRESSED MOOD [None]
  - CRYING [None]
